FAERS Safety Report 14937062 (Version 2)
Quarter: 2018Q3

REPORT INFORMATION
  Report Type: Report from Study
  Country: JP (occurrence: JP)
  Receive Date: 20180525
  Receipt Date: 20180731
  Transmission Date: 20181010
  Serious: Yes (Other)
  Sender: FDA-Public Use
  Company Number: JP-ALXN-A201806110AA

PATIENT
  Sex: Male
  Weight: 68 kg

DRUGS (42)
  1. NEORAL [Concomitant]
     Active Substance: CYCLOSPORINE
     Dosage: 25 MG, UNK
     Route: 065
     Dates: start: 20180322
  2. BAKTAR [Concomitant]
     Active Substance: SULFAMETHOXAZOLE\TRIMETHOPRIM
     Dosage: 2 DF, UNK
     Route: 065
     Dates: start: 20170517, end: 20170525
  3. LANSOPRAZOLE. [Concomitant]
     Active Substance: LANSOPRAZOLE
     Dosage: 15 MG, UNK
     Route: 065
     Dates: start: 20180221, end: 20180227
  4. NEORAL [Concomitant]
     Active Substance: CYCLOSPORINE
     Indication: APLASTIC ANAEMIA
     Dosage: 175 MG, DAILY
     Route: 065
     Dates: start: 20170323, end: 20170408
  5. NEORAL [Concomitant]
     Active Substance: CYCLOSPORINE
     Dosage: 75 MG, DAILY
     Route: 065
     Dates: start: 20170409, end: 20170418
  6. NEORAL [Concomitant]
     Active Substance: CYCLOSPORINE
     Dosage: 75 MG, DAILY
     Route: 065
     Dates: start: 20170507, end: 20170516
  7. NEORAL [Concomitant]
     Active Substance: CYCLOSPORINE
     Dosage: 125 MG, DAILY
     Route: 065
     Dates: start: 20170712, end: 20170712
  8. BAKTAR [Concomitant]
     Active Substance: SULFAMETHOXAZOLE\TRIMETHOPRIM
     Indication: PROPHYLAXIS
     Dosage: 2 DF, UNK
     Route: 065
     Dates: start: 20170419, end: 20170426
  9. LANSOPRAZOLE. [Concomitant]
     Active Substance: LANSOPRAZOLE
     Dosage: 15 MG, UNK
     Route: 065
     Dates: start: 20170322, end: 20170328
  10. NEORAL [Concomitant]
     Active Substance: CYCLOSPORINE
     Dosage: 175 MG, UNK
     Route: 065
     Dates: start: 20170419, end: 20170506
  11. NEORAL [Concomitant]
     Active Substance: CYCLOSPORINE
     Dosage: 50 MG, BID
     Route: 065
     Dates: start: 20170613, end: 20170613
  12. NEORAL [Concomitant]
     Active Substance: CYCLOSPORINE
     Dosage: 50 MG, UNK
     Route: 065
     Dates: start: 20180125, end: 20180321
  13. BAKTAR [Concomitant]
     Active Substance: SULFAMETHOXAZOLE\TRIMETHOPRIM
     Dosage: 2 DF, UNK
     Route: 065
     Dates: start: 20171227, end: 20180104
  14. LANSOPRAZOLE. [Concomitant]
     Active Substance: LANSOPRAZOLE
     Indication: PROPHYLAXIS AGAINST GASTROINTESTINAL ULCER
     Dosage: 15 MG, DAILY
     Route: 065
     Dates: start: 20170308, end: 20170417
  15. LANSOPRAZOLE. [Concomitant]
     Active Substance: LANSOPRAZOLE
     Dosage: 15 MG, UNK
     Route: 065
     Dates: start: 20180124, end: 20180130
  16. SOLIRIS [Suspect]
     Active Substance: ECULIZUMAB
     Indication: PAROXYSMAL NOCTURNAL HAEMOGLOBINURIA
     Dosage: 600 MG, QW
     Route: 042
     Dates: start: 20170111, end: 20170201
  17. NEORAL [Concomitant]
     Active Substance: CYCLOSPORINE
     Dosage: 50 MG, DAILY
     Route: 065
     Dates: start: 20170604, end: 20170609
  18. ZOVIRAX [Concomitant]
     Active Substance: ACYCLOVIR
     Dosage: 75 MG, UNK
     Route: 065
     Dates: start: 20170507, end: 20170603
  19. BAKTAR [Concomitant]
     Active Substance: SULFAMETHOXAZOLE\TRIMETHOPRIM
     Dosage: 2 DF, UNK
     Route: 065
     Dates: start: 20180124, end: 20180201
  20. LANSOPRAZOLE. [Concomitant]
     Active Substance: LANSOPRAZOLE
     Dosage: 15 MG, DAILY
     Route: 065
     Dates: start: 20171004, end: 20171010
  21. LOXOPROFEN [Concomitant]
     Active Substance: LOXOPROFEN
     Indication: PROPHYLAXIS
     Dosage: 60 MG, Q2W
     Route: 065
     Dates: start: 20170405, end: 20180307
  22. NEORAL [Concomitant]
     Active Substance: CYCLOSPORINE
     Dosage: 150 MG, DAILY
     Route: 065
     Dates: start: 20170614, end: 20170711
  23. NEORAL [Concomitant]
     Active Substance: CYCLOSPORINE
     Dosage: 100 MG, UNK
     Route: 065
     Dates: start: 20170906, end: 20171031
  24. ZOVIRAX [Concomitant]
     Active Substance: ACYCLOVIR
     Dosage: 200 MG, UNK
     Route: 065
     Dates: start: 20170420, end: 20170510
  25. BAKTAR [Concomitant]
     Active Substance: SULFAMETHOXAZOLE\TRIMETHOPRIM
     Dosage: 2 DF, DAILY
     Route: 065
     Dates: start: 20170614, end: 20170622
  26. SOLIRIS [Suspect]
     Active Substance: ECULIZUMAB
     Dosage: 900 MG, UNK
     Route: 042
     Dates: start: 20170208
  27. NEORAL [Concomitant]
     Active Substance: CYCLOSPORINE
     Dosage: 175 MG, UNK
     Route: 065
     Dates: start: 20170517, end: 20170517
  28. NEORAL [Concomitant]
     Active Substance: CYCLOSPORINE
     Dosage: 150 MG, DAILY
     Route: 065
     Dates: start: 20170518, end: 20170603
  29. NEORAL [Concomitant]
     Active Substance: CYCLOSPORINE
     Dosage: 75 MG, UNK
     Route: 065
     Dates: start: 20171101, end: 20180124
  30. BAKTAR [Concomitant]
     Active Substance: SULFAMETHOXAZOLE\TRIMETHOPRIM
     Dosage: 2 DF, UNK
     Route: 065
     Dates: start: 20170809, end: 20170817
  31. BAKTAR [Concomitant]
     Active Substance: SULFAMETHOXAZOLE\TRIMETHOPRIM
     Dosage: 2 DF, UNK
     Route: 065
     Dates: start: 20170906, end: 20170914
  32. BAKTAR [Concomitant]
     Active Substance: SULFAMETHOXAZOLE\TRIMETHOPRIM
     Dosage: 2 DF, UNK
     Route: 065
     Dates: start: 20171004, end: 20171012
  33. BAKTAR [Concomitant]
     Active Substance: SULFAMETHOXAZOLE\TRIMETHOPRIM
     Dosage: 2 DF, UNK
     Route: 065
     Dates: start: 20171101, end: 20171109
  34. NEORAL [Concomitant]
     Active Substance: CYCLOSPORINE
     Dosage: 150 MG, DAILY
     Route: 065
     Dates: start: 20170610, end: 20170612
  35. BAKTAR [Concomitant]
     Active Substance: SULFAMETHOXAZOLE\TRIMETHOPRIM
     Dosage: 2 DF, UNK
     Route: 065
     Dates: start: 20171129, end: 20171207
  36. BAKTAR [Concomitant]
     Active Substance: SULFAMETHOXAZOLE\TRIMETHOPRIM
     Dosage: 2 DF, UNK
     Route: 065
     Dates: start: 20180221, end: 20180301
  37. POLARAMINE [Concomitant]
     Active Substance: DEXCHLORPHENIRAMINE MALEATE
     Indication: PROPHYLAXIS
     Dosage: 2 MG, Q2W
     Route: 065
     Dates: start: 20170405, end: 20180322
  38. SAXIZON [Concomitant]
     Active Substance: HYDROCORTISONE SODIUM SUCCINATE
     Indication: PROPHYLAXIS
     Dosage: 50 MG, Q2W
     Route: 065
     Dates: start: 20170405, end: 20170614
  39. ZOVIRAX [Concomitant]
     Active Substance: ACYCLOVIR
     Indication: PROPHYLAXIS
     Dosage: 200 MG, DAILY
     Route: 065
     Dates: start: 20161208, end: 20170411
  40. BAKTAR [Concomitant]
     Active Substance: SULFAMETHOXAZOLE\TRIMETHOPRIM
     Dosage: 2 DF, UNK
     Route: 065
     Dates: start: 20170712, end: 20170720
  41. BAKTAR [Concomitant]
     Active Substance: SULFAMETHOXAZOLE\TRIMETHOPRIM
     Dosage: 2 DF, UNK
     Route: 065
     Dates: start: 20180322, end: 20180330
  42. LANSOPRAZOLE. [Concomitant]
     Active Substance: LANSOPRAZOLE
     Dosage: 15 MG, UNK
     Route: 065
     Dates: start: 20170531, end: 20170809

REACTIONS (3)
  - Conjunctivitis allergic [Unknown]
  - Rhinitis allergic [Unknown]
  - Anaphylactic reaction [Recovered/Resolved]

NARRATIVE: CASE EVENT DATE: 20170405
